FAERS Safety Report 4617934-5 (Version None)
Quarter: 2005Q1

REPORT INFORMATION
  Report Type: 
  Country: None (occurrence: None)
  Receive Date: 20050322
  Receipt Date: 20050307
  Transmission Date: 20050727
  Serious: Yes (Hospitalization)
  Sender: FDA-Public Use
  Company Number: 205473

PATIENT
  Age: 38 Year
  Sex: Female

DRUGS (2)
  1. AVONEX [Suspect]
     Indication: MULTIPLE SCLEROSIS
     Dosage: 30 UG; QW; IM
     Route: 030
     Dates: start: 20031124
  2. METYHLPREDNISOLONE VS PLACEBO [Concomitant]

REACTIONS (3)
  - BLADDER PROLAPSE [None]
  - SENSATION OF HEAVINESS [None]
  - STRESS INCONTINENCE [None]
